FAERS Safety Report 10541059 (Version 1)
Quarter: 2014Q4

REPORT INFORMATION
  Report Type: Spontaneous
  Country: US (occurrence: None)
  Receive Date: 20141010
  Receipt Date: 20141010
  Transmission Date: 20150529
  Serious: Yes (Hospitalization)
  Sender: FDA-Public Use
  Company Number: 2014PL000114

PATIENT
  Age: 75 Year
  Sex: Female
  Weight: 58 kg

DRUGS (4)
  1. ALLOPURINOL (ALLOPURINOL) TABLET [Suspect]
     Active Substance: ALLOPURINOL
     Indication: BLOOD URIC ACID ABNORMAL
     Dates: start: 201403, end: 201403
  2. IBRUTINIB [Suspect]
     Active Substance: IBRUTINIB
     Indication: MANTLE CELL LYMPHOMA
     Route: 048
     Dates: start: 20140301
  3. TYLENOL PM (DIPHENHYDRAMINE HYDROCHLORIDE, PARACETAMOL) [Concomitant]
  4. ULORIC [Concomitant]
     Active Substance: FEBUXOSTAT

REACTIONS (10)
  - Rash [None]
  - Platelet count decreased [None]
  - Diarrhoea [None]
  - Contusion [None]
  - Nausea [None]
  - Pruritus [None]
  - Nocturia [None]
  - Ocular hyperaemia [None]
  - Epistaxis [None]
  - Alopecia [None]

NARRATIVE: CASE EVENT DATE: 201402
